FAERS Safety Report 11353515 (Version 1)
Quarter: 2015Q3

REPORT INFORMATION
  Report Type: Spontaneous
  Country: US (occurrence: US)
  Receive Date: 20150807
  Receipt Date: 20150807
  Transmission Date: 20151125
  Serious: No
  Sender: FDA-Public Use
  Company Number: US-JNJFOC-20150501316

PATIENT
  Age: 44 Year
  Sex: Female
  Weight: 62.14 kg

DRUGS (3)
  1. MULTIVITAMINS [Concomitant]
     Active Substance: VITAMINS
     Indication: ROUTINE HEALTH MAINTENANCE
     Route: 065
  2. MENS ROGAINE EXTRA STRENGTH [Suspect]
     Active Substance: MINOXIDIL
     Route: 061
  3. MENS ROGAINE EXTRA STRENGTH [Suspect]
     Active Substance: MINOXIDIL
     Indication: HAIR GROWTH ABNORMAL
     Dosage: A DROPPER
     Route: 061

REACTIONS (4)
  - Skin lesion [Recovered/Resolved]
  - Skin tightness [Recovered/Resolved]
  - Pruritus [Recovered/Resolved]
  - Wrong patient received medication [Unknown]
